FAERS Safety Report 15192088 (Version 1)
Quarter: 2018Q3

REPORT INFORMATION
  Report Type: Spontaneous
  Country: US (occurrence: US)
  Receive Date: 20180626
  Receipt Date: 20180626
  Transmission Date: 20181010
  Serious: Yes (Other)
  Sender: FDA-Public Use
  Company Number: None

PATIENT
  Age: 71 Year
  Sex: Male
  Weight: 108 kg

DRUGS (10)
  1. CALCIUM [Concomitant]
     Active Substance: CALCIUM
  2. BISOPROLOL [Concomitant]
     Active Substance: BISOPROLOL
  3. VITAMIN B COMPLEX [Concomitant]
     Active Substance: CYANOCOBALAMIN\DEXPANTHENOL\NIACINAMIDE\PYRIDOXINE HYDROCHLORIDE\RIBOFLAVIN 5^-PHOSPHATE SODIUM\THIAMINE HYDROCHLORIDE\VITAMIN B COMPLEX
  4. VITAMIN D [Concomitant]
     Active Substance: CHOLECALCIFEROL
  5. FLECAINIDE [Concomitant]
     Active Substance: FLECAINIDE
  6. ZYTIGA [Suspect]
     Active Substance: ABIRATERONE ACETATE
     Indication: PROSTATE CANCER
     Route: 048
     Dates: start: 20180312, end: 20180626
  7. ELIGARD [Concomitant]
     Active Substance: LEUPROLIDE ACETATE
  8. FLUOROURACIL. [Concomitant]
     Active Substance: FLUOROURACIL
  9. PREDNISONE. [Concomitant]
     Active Substance: PREDNISONE
  10. PRADAXA [Concomitant]
     Active Substance: DABIGATRAN ETEXILATE MESYLATE

REACTIONS (3)
  - Dizziness exertional [None]
  - Dyspnoea exertional [None]
  - Heart rate increased [None]
